FAERS Safety Report 5121471-1 (Version None)
Quarter: 2006Q4

REPORT INFORMATION
  Report Type: 
  Country: None (occurrence: None)
  Receive Date: 20061006
  Receipt Date: 20060925
  Transmission Date: 20070319
  Serious: Yes (Hospitalization)
  Sender: FDA-Public Use
  Company Number: JP-JNJFOC-20051000285

PATIENT
  Sex: Male
  Weight: 57 kg

DRUGS (14)
  1. REMICADE [Suspect]
     Route: 042
  2. REMICADE [Suspect]
     Route: 042
  3. REMICADE [Suspect]
     Route: 042
  4. REMICADE [Suspect]
     Route: 042
  5. REMICADE [Suspect]
     Route: 042
  6. REMICADE [Suspect]
     Indication: CROHN'S DISEASE
     Route: 042
  7. IMURAN [Suspect]
     Indication: CROHN'S DISEASE
     Route: 048
  8. PREDONINE [Concomitant]
     Indication: CROHN'S DISEASE
     Route: 048
  9. PENTASA [Concomitant]
     Indication: CROHN'S DISEASE
     Route: 048
  10. LAC B [Concomitant]
     Indication: CROHN'S DISEASE
     Route: 048
  11. LOPEMIN [Concomitant]
     Indication: DIARRHOEA
     Route: 048
  12. MUCOSTA [Concomitant]
     Route: 048
  13. FLAGYL [Concomitant]
     Indication: CROHN'S DISEASE
     Route: 048
  14. POSTERISAN [Concomitant]
     Indication: ANAL FISTULA
     Dosage: ROUTE OF ADMINISTRATION IS OD

REACTIONS (6)
  - CYTOMEGALOVIRUS INFECTION [None]
  - DISSEMINATED INTRAVASCULAR COAGULATION [None]
  - HYPOXIA [None]
  - PANCYTOPENIA [None]
  - RASH ERYTHEMATOUS [None]
  - WHITE BLOOD CELL COUNT DECREASED [None]
